FAERS Safety Report 5877382-7 (Version None)
Quarter: 2008Q3

REPORT INFORMATION
  Report Type: 
  Country: None (occurrence: None)
  Receive Date: 20080908
  Receipt Date: 20080828
  Transmission Date: 20090109
  Serious: Yes (Hospitalization, Other)
  Sender: FDA-Public Use
  Company Number: GB-DEXPHARM-20080988

PATIENT
  Age: 84 Year
  Sex: Male

DRUGS (4)
  1. OMEPRAZOLE [Suspect]
     Dosage: 20 MG MILLGRAM(S), 1 IN 1 DAY ORAL
     Route: 048
     Dates: start: 20080616
  2. AMLODIPINE [Concomitant]
  3. ASPIRIN [Concomitant]
  4. METFORMIN HCL [Concomitant]

REACTIONS (2)
  - CONVULSION [None]
  - HYPOMAGNESAEMIA [None]
